FAERS Safety Report 17875780 (Version 5)
Quarter: 2021Q1

REPORT INFORMATION
  Report Type: Report from Study
  Country: US (occurrence: US)
  Receive Date: 20200609
  Receipt Date: 20210104
  Transmission Date: 20210419
  Serious: Yes (Death, Hospitalization)
  Sender: FDA-Public Use
  Company Number: US-ROCHE-2609673

PATIENT
  Age: 86 Year
  Sex: Male
  Weight: 53.3 kg

DRUGS (24)
  1. FINASTERIDE. [Concomitant]
     Active Substance: FINASTERIDE
     Indication: CHRONIC KIDNEY DISEASE
     Dates: start: 20190225
  2. DEXAMETHASONE. [Concomitant]
     Active Substance: DEXAMETHASONE
     Dates: start: 20200323
  3. ACETAMINOPHEN. [Concomitant]
     Active Substance: ACETAMINOPHEN
     Dates: start: 20200415
  4. DIPHENHYDRAMINE. [Concomitant]
     Active Substance: DIPHENHYDRAMINE
     Dates: start: 20200415
  5. DEXAMETHASONE. [Concomitant]
     Active Substance: DEXAMETHASONE
     Dates: start: 20200304
  6. ACETAMINOPHEN. [Concomitant]
     Active Substance: ACETAMINOPHEN
     Dates: start: 20200310
  7. DIPHENHYDRAMINE. [Concomitant]
     Active Substance: DIPHENHYDRAMINE
     Dates: start: 20200304
  8. DIPHENHYDRAMINE. [Concomitant]
     Active Substance: DIPHENHYDRAMINE
     Dates: start: 20200323
  9. OBINUTUZUMAB. [Suspect]
     Active Substance: OBINUTUZUMAB
     Indication: B-CELL LYMPHOMA
     Dosage: START DATE OF MOST RECENT DOSE OF STUDY DRUG PRIOR TO SAE: 04/MAR/2020
     Route: 042
     Dates: start: 20200304
  10. DEXAMETHASONE. [Concomitant]
     Active Substance: DEXAMETHASONE
     Dates: start: 20200506
  11. ACETAMINOPHEN. [Concomitant]
     Active Substance: ACETAMINOPHEN
     Indication: CANCER PAIN
     Dates: start: 20200304
  12. DIPHENHYDRAMINE. [Concomitant]
     Active Substance: DIPHENHYDRAMINE
     Dates: start: 20200506
  13. SOTALOL. [Concomitant]
     Active Substance: SOTALOL
     Indication: ATRIAL FLUTTER
     Dates: start: 20190513
  14. DEXAMETHASONE. [Concomitant]
     Active Substance: DEXAMETHASONE
     Dates: start: 20200310
  15. ACETAMINOPHEN. [Concomitant]
     Active Substance: ACETAMINOPHEN
     Dates: start: 20200506
  16. ACETAMINOPHEN. [Concomitant]
     Active Substance: ACETAMINOPHEN
     Dates: start: 20200205
  17. ACYCLOVIR. [Concomitant]
     Active Substance: ACYCLOVIR
     Dates: start: 20200312
  18. APIXABAN [Concomitant]
     Active Substance: APIXABAN
     Indication: ATRIAL FLUTTER
     Dates: start: 20191021
  19. TAMSULOSIN [Concomitant]
     Active Substance: TAMSULOSIN
     Indication: CHRONIC KIDNEY DISEASE
     Dates: start: 20200413
  20. DEXAMETHASONE. [Concomitant]
     Active Substance: DEXAMETHASONE
     Dates: start: 20200415
  21. DIPHENHYDRAMINE. [Concomitant]
     Active Substance: DIPHENHYDRAMINE
     Dates: start: 20200310
  22. RO7082859 (CD20/C3 T?CELL BISPECIFIC MAB) [Suspect]
     Active Substance: GLOFITAMAB
     Indication: B-CELL LYMPHOMA
     Dosage: ON 06/MAY/2020, HE RECEIVED MOST RECENT DOSE OF RO7082859 (CD20/C3 T?CELL BISPECIFIC MAB) 16 MG PRIO
     Route: 042
     Dates: start: 20200310
  23. TOCILIZUMAB. [Suspect]
     Active Substance: TOCILIZUMAB
     Indication: B-CELL LYMPHOMA
     Route: 042
     Dates: start: 20200311
  24. ACETAMINOPHEN. [Concomitant]
     Active Substance: ACETAMINOPHEN
     Dates: start: 20200323

REACTIONS (1)
  - Pneumonia [Fatal]

NARRATIVE: CASE EVENT DATE: 20200525
